FAERS Safety Report 7107544-2 (Version None)
Quarter: 2010Q4

REPORT INFORMATION
  Report Type: 
  Country: None (occurrence: None)
  Receive Date: 20101117
  Receipt Date: 20101111
  Transmission Date: 20110411
  Serious: Yes (Hospitalization, Other)
  Sender: FDA-Public Use
  Company Number: US-RB-018053-10

PATIENT
  Age: 24 Year
  Sex: Male

DRUGS (5)
  1. SUBOXONE [Suspect]
     Route: 060
     Dates: start: 20080601
  2. SUBOXONE [Suspect]
     Indication: DRUG DEPENDENCE
     Dosage: DOSES TAPERING TO 8 MG DAILY
     Route: 060
  3. ADDERALL 10 [Suspect]
     Indication: ATTENTION DEFICIT/HYPERACTIVITY DISORDER
     Dosage: DOSING DETAILS UNKNOWN
     Route: 048
     Dates: end: 20081101
  4. ADDERALL 10 [Suspect]
     Dosage: DOSING DETAILS UNKNOWN
     Route: 048
     Dates: start: 20090101, end: 20100301
  5. INVEGA [Suspect]
     Indication: PSYCHOTIC DISORDER
     Route: 048
     Dates: start: 20100201, end: 20100201

REACTIONS (4)
  - ADVERSE DRUG REACTION [None]
  - HALLUCINATION, AUDITORY [None]
  - HALLUCINATION, VISUAL [None]
  - PSYCHOTIC DISORDER [None]
